FAERS Safety Report 7576869-9 (Version None)
Quarter: 2011Q2

REPORT INFORMATION
  Report Type: 
  Country: None (occurrence: None)
  Receive Date: 20110628
  Receipt Date: 20110531
  Transmission Date: 20111010
  Serious: Yes (Other)
  Sender: FDA-Public Use
  Company Number: US-BAYER-201029054NA

PATIENT
  Age: 30 Year
  Sex: Female
  Weight: 102.4 kg

DRUGS (6)
  1. OMEPRAZOLE [Concomitant]
     Dosage: UNK
     Dates: start: 20060101, end: 20080101
  2. CLARITIN [Concomitant]
  3. ATENOLOL [Concomitant]
     Indication: BLOOD PRESSURE MANAGEMENT
     Dosage: UNK
     Dates: start: 20010101, end: 20100101
  4. PREVACID [Concomitant]
     Dosage: 30 MG/D, UNK
  5. YASMIN [Suspect]
     Indication: CONTRACEPTION
     Dosage: UNK UNK, UNK
     Route: 048
     Dates: start: 20050401, end: 20080501
  6. WOMEN+#8217;S DAILY VITAMIN [Concomitant]
     Dosage: UNK UNK, QD

REACTIONS (4)
  - CHOLELITHIASIS [None]
  - CHOLECYSTITIS CHRONIC [None]
  - ABDOMINAL PAIN [None]
  - GALLBLADDER DISORDER [None]
